FAERS Safety Report 4765916-5 (Version None)
Quarter: 2005Q3

REPORT INFORMATION
  Report Type: 
  Country: None (occurrence: None)
  Receive Date: 20050912
  Receipt Date: 20050905
  Transmission Date: 20060218
  Serious: Yes (Life-Threatening)
  Sender: FDA-Public Use
  Company Number: PHRM2005FR02380

PATIENT
  Age: 68 Year
  Sex: Male
  Weight: 97 kg

DRUGS (9)
  1. GLEEVEC [Suspect]
     Indication: CHRONIC MYELOID LEUKAEMIA
     Dosage: 400 MG DAILY
     Route: 048
     Dates: start: 20001025
  2. GLEEVEC [Suspect]
     Dosage: 300 MG DAILY
     Route: 048
     Dates: start: 20040119
  3. GLEEVEC [Suspect]
     Dosage: 400 MG DAILY
     Route: 048
     Dates: start: 20050307
  4. CARDIOSOLUPSAN [Concomitant]
  5. CORDARONE [Concomitant]
  6. APROVEL [Concomitant]
  7. AMLOR [Concomitant]
  8. ALLOPURINOL [Concomitant]
  9. OMIX [Concomitant]

REACTIONS (4)
  - BENIGN PROSTATIC HYPERPLASIA [None]
  - PROSTATE CANCER [None]
  - PROSTATIC OBSTRUCTION [None]
  - PROSTATIC SPECIFIC ANTIGEN INCREASED [None]
